FAERS Safety Report 10447806 (Version 2)
Quarter: 2014Q4

REPORT INFORMATION
  Report Type: Spontaneous
  Country: US (occurrence: US)
  Receive Date: 20140911
  Receipt Date: 20141110
  Transmission Date: 20150528
  Serious: Yes (Other)
  Sender: FDA-Public Use
  Company Number: US-TEVA-507395USA

PATIENT
  Sex: Female

DRUGS (1)
  1. PACLITAXEL. [Suspect]
     Active Substance: PACLITAXEL
     Dosage: 100 MG/16.7 ML
     Route: 065

REACTIONS (3)
  - Neuropathy peripheral [Unknown]
  - Blood pressure decreased [Unknown]
  - Abasia [Unknown]
